FAERS Safety Report 8554450-2 (Version None)
Quarter: 2012Q3

REPORT INFORMATION
  Report Type: 
  Country: None (occurrence: None)
  Receive Date: 20120731
  Receipt Date: 20120723
  Transmission Date: 20120928
  Serious: Yes (Hospitalization)
  Sender: FDA-Public Use
  Company Number: US-009507513-1207USA009906

PATIENT

DRUGS (6)
  1. FUSIDIC ACID [Suspect]
     Dosage: 250 MG, BID
     Route: 048
  2. ZOCOR [Suspect]
     Dosage: 40 MG, QD
     Route: 048
  3. NICORANDIL [Concomitant]
  4. FLOXACILLIN SODIUM [Concomitant]
  5. CILOSTAZOL [Concomitant]
  6. OMEPRAZOLE [Concomitant]

REACTIONS (3)
  - RHABDOMYOLYSIS [None]
  - LOCALISED INFECTION [None]
  - DRUG INTERACTION [None]
